FAERS Safety Report 5249758-2 (Version None)
Quarter: 2007Q1

REPORT INFORMATION
  Report Type: 
  Country: None (occurrence: None)
  Receive Date: 20070228
  Receipt Date: 20061031
  Transmission Date: 20070707
  Serious: No
  Sender: FDA-Public Use
  Company Number: US-GLAXOSMITHKLINE-A0625581A

PATIENT
  Age: 31 Year
  Sex: Female

DRUGS (9)
  1. IMITREX [Suspect]
     Indication: MIGRAINE
     Dosage: 6MG SINGLE DOSE
     Route: 058
     Dates: start: 20060731, end: 20061031
  2. SINGULAIR [Concomitant]
  3. ZYRTEC [Concomitant]
  4. AMBIEN [Concomitant]
  5. AMITRIPTYLINE HCL [Concomitant]
  6. SOMA [Concomitant]
  7. DARVOCET [Concomitant]
  8. LYRICA [Concomitant]
  9. ALBUTEROL [Concomitant]

REACTIONS (2)
  - INJECTION SITE PAIN [None]
  - INJECTION SITE URTICARIA [None]
